FAERS Safety Report 7691627-2 (Version None)
Quarter: 2011Q3

REPORT INFORMATION
  Report Type: 
  Country: None (occurrence: None)
  Receive Date: 20110818
  Receipt Date: 20110808
  Transmission Date: 20111222
  Serious: Yes (Hospitalization, Other)
  Sender: FDA-Public Use
  Company Number: FR-PFIZER INC-FR-WYE-H13352010

PATIENT
  Age: 64 Year
  Sex: Female
  Weight: 64 kg

DRUGS (7)
  1. IMODIUM [Concomitant]
     Dosage: 2 TABLET 3 TIMES PER 1 DAY
     Route: 065
  2. POTASSIUM CHLORIDE [Concomitant]
     Dosage: 2 CAPSULE 2 TIMES PER 1 DAY
     Route: 065
  3. NERATINIB [Suspect]
     Indication: BREAST CANCER
     Dosage: 240 MG, 1X/DAY
     Route: 048
     Dates: start: 20091221, end: 20100111
  4. CITALOPRAM HYDROBROMIDE [Concomitant]
     Dosage: 20 MG, 1X/DAY
     Route: 065
  5. NERATINIB [Suspect]
     Dosage: 200 MG, 1X/DAY
     Route: 048
     Dates: start: 20100118
  6. TEMSIROLIMUS [Suspect]
     Indication: BREAST CANCER
     Dosage: 15 MG, WEEKLY
     Route: 042
     Dates: start: 20091221, end: 20100111
  7. TIORFAN [Concomitant]
     Dosage: IF NEEDED
     Route: 065

REACTIONS (4)
  - HYPOKALAEMIA [None]
  - MUCOSAL INFLAMMATION [None]
  - ORAL HERPES [None]
  - DIARRHOEA [None]
